FAERS Safety Report 5866033-3 (Version None)
Quarter: 2008Q3

REPORT INFORMATION
  Report Type: 
  Country: None (occurrence: None)
  Receive Date: 20080829
  Receipt Date: 20080825
  Transmission Date: 20090109
  Serious: Yes (Hospitalization, Other)
  Sender: FDA-Public Use
  Company Number: NL-BOEHRINGER INGELHEIM GMBH, GERMANY-2008-BP-13325RO

PATIENT
  Sex: Female

DRUGS (8)
  1. AZATHIOPRINE [Suspect]
     Indication: CROHN'S DISEASE
  2. AZATHIOPRINE [Suspect]
  3. 5-ASA [Suspect]
     Indication: CROHN'S DISEASE
  4. CORTICOSTEROIDS [Suspect]
     Indication: CROHN'S DISEASE
  5. AMINOPENICILLIN [Concomitant]
     Indication: GASTROINTESTINAL INFLAMMATION
  6. AMINOPENICILLIN [Concomitant]
     Indication: PNEUMONIA
  7. AMINOGLYCOSIDE [Concomitant]
     Indication: INFLAMMATION
  8. AMINOGLYCOSIDE [Concomitant]
     Indication: PNEUMONIA

REACTIONS (9)
  - C-REACTIVE PROTEIN INCREASED [None]
  - CYTOMEGALOVIRUS TEST [None]
  - DIARRHOEA [None]
  - GASTROINTESTINAL INFLAMMATION [None]
  - MYALGIA [None]
  - PANCYTOPENIA [None]
  - PNEUMONIA [None]
  - PYREXIA [None]
  - UNEVALUABLE EVENT [None]
